FAERS Safety Report 4893059-9 (Version None)
Quarter: 2005Q4

REPORT INFORMATION
  Report Type: 
  Country: None (occurrence: None)
  Receive Date: 20051223
  Receipt Date: 20051019
  Transmission Date: 20060501
  Serious: Yes (Hospitalization)
  Sender: FDA-Public Use
  Company Number: 218770

PATIENT
  Age: 73 Year
  Sex: Male
  Weight: 81.6 kg

DRUGS (6)
  1. AVASTIN [Suspect]
     Indication: COLON CANCER
     Dosage: 410 MG, SINGLE, INTRAVENOUS
     Route: 042
     Dates: start: 20050907, end: 20050907
  2. OXALIPLATIN (OXALIPLATIN) [Concomitant]
  3. FLUOROURACIL [Concomitant]
  4. LEUCOVORIN CALCIUM [Concomitant]
  5. ANTIBIOTICS NOS (ANTIBIOTICS NOS) [Concomitant]
  6. INSULIN [Concomitant]

REACTIONS (1)
  - ENTEROCUTANEOUS FISTULA [None]
